FAERS Safety Report 25403834 (Version 1)
Quarter: 2025Q2

REPORT INFORMATION
  Report Type: Spontaneous
  Country: FR (occurrence: FR)
  Receive Date: 20250606
  Receipt Date: 20250606
  Transmission Date: 20250716
  Serious: Yes (Other)
  Sender: RECORDATI
  Company Number: FR-ORPHANEU-2025003875

PATIENT
  Age: 24 Year
  Sex: Female

DRUGS (4)
  1. SILTUXIMAB [Suspect]
     Active Substance: SILTUXIMAB
     Indication: Still^s disease
     Dosage: 11  MG/KG EVERY 3 WEEKS
     Dates: start: 201701, end: 202008
  2. SILTUXIMAB [Suspect]
     Active Substance: SILTUXIMAB
     Indication: Off label use
  3. PREDNISONE [Suspect]
     Active Substance: PREDNISONE
     Indication: Still^s disease
     Dates: start: 201701, end: 202008
  4. PREDNISONE [Suspect]
     Active Substance: PREDNISONE

REACTIONS (2)
  - Hepatic cytolysis [Unknown]
  - Off label use [Recovered/Resolved]

NARRATIVE: CASE EVENT DATE: 20170101
